FAERS Safety Report 20344354 (Version 2)
Quarter: 2022Q1

REPORT INFORMATION
  Report Type: Report from Study
  Country: AU (occurrence: AU)
  Receive Date: 20220118
  Receipt Date: 20220304
  Transmission Date: 20220424
  Serious: Yes (Hospitalization)
  Sender: FDA-Public Use
  Company Number: AU-GLAXOSMITHKLINE-AU2021GSK253107

PATIENT
  Age: 59 Year
  Sex: Male

DRUGS (12)
  1. BELANTAMAB MAFODOTIN [Suspect]
     Active Substance: BELANTAMAB MAFODOTIN
     Indication: Plasma cell myeloma
     Dosage: 1.9 MG/KG
     Route: 042
     Dates: start: 20210831
  2. BORTEZOMIB [Suspect]
     Active Substance: BORTEZOMIB
     Indication: Plasma cell myeloma
     Dosage: LATEST DOSE :BORTEZOMIB: 03- DEC-2021, DEXAMETHASONE: 04-DEC-2021.
     Dates: start: 20210831
  3. TRIAMCINOLONE [Concomitant]
     Active Substance: TRIAMCINOLONE
     Indication: Back pain
     Dosage: 10 MG. EVERY 3 MONTHS
     Route: 030
     Dates: start: 20210723
  4. VALACYCLOVIR [Concomitant]
     Active Substance: VALACYCLOVIR HYDROCHLORIDE
     Indication: Antiviral prophylaxis
     Dosage: 500 MG, QD
     Route: 048
     Dates: start: 20210831
  5. REFRESH CELLUVISC [Concomitant]
     Active Substance: CARBOXYMETHYLCELLULOSE SODIUM
     Indication: Prophylaxis
     Dosage: 1 DROP, PRN
     Route: 031
     Dates: start: 20210831
  6. ACETAMINOPHEN [Concomitant]
     Active Substance: ACETAMINOPHEN
     Indication: Back pain
     Dosage: 1000 MG, PRN
     Route: 048
     Dates: start: 20210909
  7. PIPERACILLIN SODIUM\TAZOBACTAM SODIUM [Concomitant]
     Active Substance: PIPERACILLIN SODIUM\TAZOBACTAM SODIUM
     Indication: Metapneumovirus pneumonia
     Dosage: 4.5 G, PRN
     Route: 042
     Dates: start: 20210916, end: 20210917
  8. CEPHALEXIN [Concomitant]
     Active Substance: CEPHALEXIN
     Indication: Metapneumovirus pneumonia
     Dosage: 1000 MG, BID
     Route: 048
     Dates: start: 20210915
  9. SULFAMETHOXAZOLE\TRIMETHOPRIM [Concomitant]
     Active Substance: SULFAMETHOXAZOLE\TRIMETHOPRIM
     Indication: Prophylaxis
     Dosage: 160 MG, 3 TIMES PER WEEK
     Route: 048
     Dates: start: 20210901
  10. AZITHROMYCIN [Concomitant]
     Active Substance: AZITHROMYCIN
     Indication: Pneumonia viral
     Dosage: 500 MG, QD
     Route: 048
     Dates: start: 20210917
  11. AMOXICILLIN\CLAVULANIC ACID [Concomitant]
     Active Substance: AMOXICILLIN\CLAVULANIC ACID
     Indication: Pneumonia viral
     Dosage: 875 MG, QD
     Route: 048
     Dates: start: 20210917
  12. DEXAMETHASONE [Suspect]
     Active Substance: DEXAMETHASONE

REACTIONS (2)
  - Campylobacter infection [Recovered/Resolved]
  - Bacteraemia [Recovered/Resolved]

NARRATIVE: CASE EVENT DATE: 20211209
